FAERS Safety Report 25967190 (Version 1)
Quarter: 2025Q4

REPORT INFORMATION
  Report Type: Spontaneous
  Country: EU (occurrence: EU)
  Receive Date: 20251028
  Receipt Date: 20251028
  Transmission Date: 20260118
  Serious: Yes (Other)
  Sender: JOHNSON AND JOHNSON
  Company Number: EU-BAYER-2025A141654

PATIENT
  Sex: Male

DRUGS (2)
  1. XARELTO [Suspect]
     Active Substance: RIVAROXABAN
     Indication: Atrial fibrillation
     Dosage: 20 MG, QD
     Route: 048
  2. XARELTO [Suspect]
     Active Substance: RIVAROXABAN
     Dosage: 15 MG, QD
     Route: 048

REACTIONS (8)
  - Renal impairment [Unknown]
  - Product dose omission issue [Unknown]
  - International normalised ratio increased [Not Recovered/Not Resolved]
  - Glomerular filtration rate decreased [Unknown]
  - Vitamin K deficiency [Unknown]
  - Liver disorder [Unknown]
  - Coagulopathy [Unknown]
  - Creatinine renal clearance decreased [Unknown]
